FAERS Safety Report 5423647-2 (Version None)
Quarter: 2007Q3

REPORT INFORMATION
  Report Type: 
  Country: None (occurrence: None)
  Receive Date: 20070823
  Receipt Date: 20070813
  Transmission Date: 20080115
  Serious: Yes (Death, Life-Threatening, Hospitalization, Disabling)
  Sender: FDA-Public Use
  Company Number: A0655302A

PATIENT
  Age: 30 Year
  Sex: Male
  Weight: 98.2 kg

DRUGS (8)
  1. AUGMENTIN '125' [Suspect]
     Dosage: 500MG SEE DOSAGE TEXT
     Route: 048
  2. TYLENOL W/ CODEINE NO. 3 [Suspect]
     Indication: OTITIS MEDIA
     Dosage: 30MG SEE DOSAGE TEXT
     Route: 048
     Dates: start: 20051229
  3. COGENTIN [Concomitant]
  4. DOCUSATE SODIUM [Concomitant]
  5. BENADRYL [Concomitant]
  6. RISPERIDONE [Concomitant]
  7. SEROQUEL [Concomitant]
  8. DEPAKOTE [Concomitant]

REACTIONS (12)
  - ACIDOSIS [None]
  - BELLIGERENCE [None]
  - BLOOD GLUCOSE DECREASED [None]
  - CAROTID ARTERY STENOSIS [None]
  - CONFUSIONAL STATE [None]
  - CORONARY ARTERY DISEASE [None]
  - DRUG INTERACTION [None]
  - PHARYNGITIS [None]
  - PULMONARY OEDEMA [None]
  - SPLENIC INFARCTION [None]
  - SUDDEN DEATH [None]
  - SUICIDE ATTEMPT [None]
